FAERS Safety Report 10476597 (Version 1)
Quarter: 2014Q3

REPORT INFORMATION
  Report Type: Spontaneous
  Country: US (occurrence: None)
  Receive Date: 20140923
  Receipt Date: 20140923
  Transmission Date: 20150326
  Serious: Yes (Other)
  Sender: FDA-Public Use
  Company Number: 001802178A

PATIENT
  Age: 48 Year
  Sex: Female

DRUGS (3)
  1. MEANINGFUL BEAUTY DARK SPOT CORRECTING TREATMENT [Suspect]
     Active Substance: HYDROQUINONE
     Dosage: DERMAL
     Dates: start: 20140610
  2. MEANINGFUL BEAUTY CINDY CRAWFORD ANTIOXIDANT SPF 20 UVA/UVB [Suspect]
     Active Substance: AVOBENZONE\OCTINOXATE\OCTISALATE\OXYBENZONE
     Dosage: DERMAL
     Dates: start: 20140610
  3. MEANINGFUL BEAUTY CINDY CRAWFORD SKIN BRIGHTENING DECOLLETE AND NECK TREATMENT SPF 15 [Suspect]
     Active Substance: AVOBENZONE\OCTINOXATE\OCTISALATE\OXYBENZONE
     Dosage: DERMAL
     Dates: start: 20140610

REACTIONS (4)
  - Hypersensitivity [None]
  - Erythema [None]
  - Rash [None]
  - Swelling [None]

NARRATIVE: CASE EVENT DATE: 20140611
